FAERS Safety Report 12660326 (Version 1)
Quarter: 2016Q3

REPORT INFORMATION
  Report Type: Spontaneous
  Country: US (occurrence: US)
  Receive Date: 20160817
  Receipt Date: 20160817
  Transmission Date: 20161109
  Serious: No
  Sender: FDA-Public Use
  Company Number: US-BAYER-2016-159348

PATIENT
  Age: 87 Year
  Sex: Female
  Weight: 50.34 kg

DRUGS (11)
  1. MIRALAX [Suspect]
     Active Substance: POLYETHYLENE GLYCOL 3350
     Indication: DIARRHOEA
     Dosage: SMALLER DOSE AS NEEDED
     Dates: start: 2016
  2. MICROGENICS PROBIOTIC 8 [Concomitant]
  3. LOVASTATIN. [Concomitant]
     Active Substance: LOVASTATIN
  4. CLARITIN [Concomitant]
     Active Substance: LORATADINE
  5. HYDROXYZINE [Concomitant]
     Active Substance: HYDROXYZINE\HYDROXYZINE HYDROCHLORIDE
  6. LORAZEPAM. [Concomitant]
     Active Substance: LORAZEPAM
  7. MIRALAX [Suspect]
     Active Substance: POLYETHYLENE GLYCOL 3350
     Indication: BOWEL MOVEMENT IRREGULARITY
  8. EQUATE ASPIRIN [Concomitant]
     Active Substance: ASPIRIN
  9. FLUTICASONE PROPIONATE. [Concomitant]
     Active Substance: FLUTICASONE PROPIONATE
  10. LEVOTHYROXINE. [Concomitant]
     Active Substance: LEVOTHYROXINE
  11. AMLODIPINE BESYLATE. [Concomitant]
     Active Substance: AMLODIPINE BESYLATE

REACTIONS (4)
  - Off label use [None]
  - Infrequent bowel movements [None]
  - Product use issue [None]
  - Diarrhoea [Recovered/Resolved]

NARRATIVE: CASE EVENT DATE: 20160814
